FAERS Safety Report 8414431-6 (Version None)
Quarter: 2012Q2

REPORT INFORMATION
  Report Type: 
  Country: None (occurrence: None)
  Receive Date: 20120605
  Receipt Date: 20120529
  Transmission Date: 20120825
  Serious: No
  Sender: FDA-Public Use
  Company Number: US-ASTRAZENECA-2012SE34851

PATIENT
  Age: 60 Year
  Sex: Female

DRUGS (1)
  1. SYMBICORT [Suspect]
     Dosage: ONCE IN A WHILE
     Route: 055

REACTIONS (3)
  - INTENTIONAL DRUG MISUSE [None]
  - SEASONAL ALLERGY [None]
  - MULTIPLE ALLERGIES [None]
